FAERS Safety Report 8073718-X (Version None)
Quarter: 2012Q1

REPORT INFORMATION
  Report Type: 
  Country: None (occurrence: None)
  Receive Date: 20120126
  Receipt Date: 20120116
  Transmission Date: 20120608
  Serious: Yes (Life-Threatening, Hospitalization)
  Sender: FDA-Public Use
  Company Number: FR-MERCK-1111USA01096

PATIENT
  Age: 38 Year
  Sex: Male

DRUGS (9)
  1. COZAAR [Suspect]
     Indication: HYPERTENSION
     Route: 048
     Dates: end: 20111011
  2. IMURAN [Concomitant]
     Route: 065
  3. TENORMIN [Suspect]
     Indication: HYPERTENSION
     Route: 048
  4. NEORAL [Concomitant]
     Route: 065
  5. HYZAAR [Suspect]
     Indication: HYPERTENSION
     Route: 048
  6. PREVISCAN [Concomitant]
     Route: 065
  7. HYPERIUM [Concomitant]
     Route: 065
  8. ATORVASTATIN [Concomitant]
     Route: 065
  9. CORTANCYL [Concomitant]
     Route: 065

REACTIONS (2)
  - ELECTROCARDIOGRAM ABNORMAL [None]
  - HYPERKALAEMIA [None]
